FAERS Safety Report 6029868-2 (Version None)
Quarter: 2009Q1

REPORT INFORMATION
  Report Type: 
  Country: None (occurrence: None)
  Receive Date: 20090107
  Receipt Date: 20090106
  Transmission Date: 20090719
  Serious: Yes (Other)
  Sender: FDA-Public Use
  Company Number: B0552727A

PATIENT
  Age: 27 Year
  Sex: Female

DRUGS (1)
  1. NICABATE CQ 21MG [Suspect]
     Indication: DRUG WITHDRAWAL MAINTENANCE THERAPY
     Dosage: 1PAT PER DAY
     Route: 062
     Dates: start: 20090104, end: 20090104

REACTIONS (5)
  - AGGRESSION [None]
  - ANXIETY [None]
  - PRURITUS [None]
  - SKIN SWELLING [None]
  - SKIN TIGHTNESS [None]
